FAERS Safety Report 8309088-9 (Version None)
Quarter: 2012Q2

REPORT INFORMATION
  Report Type: 
  Country: None (occurrence: None)
  Receive Date: 20120424
  Receipt Date: 20120416
  Transmission Date: 20120825
  Serious: Yes (Hospitalization)
  Sender: FDA-Public Use
  Company Number: FR-GILEAD-2012-0053525

PATIENT
  Sex: Male

DRUGS (22)
  1. DIOSMECTAL [Concomitant]
     Indication: PROPHYLAXIS AGAINST DIARRHOEA
     Dosage: UNK UNK, QD
     Route: 048
  2. TADALAFIL [Concomitant]
     Indication: PULMONARY ARTERIAL HYPERTENSION
     Dosage: 20 MG, BID
     Route: 048
     Dates: start: 20120405, end: 20120409
  3. CLINDAMYCIN [Concomitant]
     Indication: PRODUCT USED FOR UNKNOWN INDICATION
  4. VANCOMYCIN [Concomitant]
     Indication: PRODUCT USED FOR UNKNOWN INDICATION
  5. OXYGEN [Concomitant]
     Indication: PULMONARY ARTERIAL HYPERTENSION
     Dosage: 2 IU, QD
     Route: 055
     Dates: start: 20111101
  6. IPRATROPIUM BROMIDE [Concomitant]
     Indication: BRONCHOSPASM
     Dosage: 5 MG, UNK
     Dates: start: 20120409, end: 20120415
  7. CLOXACILLIN SODIUM [Concomitant]
     Indication: PRODUCT USED FOR UNKNOWN INDICATION
  8. TRAMADOL                           /00599202/ [Concomitant]
     Indication: PAIN
     Dosage: 150 MG, BID
     Route: 048
     Dates: start: 20120413
  9. ACETAMINOPHEN [Concomitant]
     Indication: PAIN
     Dosage: 100 MG, TID
     Route: 048
  10. TERBUTALINE [Concomitant]
     Indication: BRONCHOSPASM
     Dosage: 5 MG, UNK
     Route: 055
     Dates: start: 20120409, end: 20120415
  11. SPIRONOLACTONE ALTIZIDE ARROW [Concomitant]
     Indication: PULMONARY ARTERIAL HYPERTENSION
     Dosage: 50 MG, QD
     Route: 048
  12. FLUINDIONE [Concomitant]
     Indication: JUGULAR VEIN THROMBOSIS
     Dosage: 1 DF, QD
     Route: 048
     Dates: start: 20041201
  13. TRAMADOL                           /00599202/ [Concomitant]
     Dosage: 50 MG, BID
     Route: 048
     Dates: end: 20120413
  14. ILOPROST [Concomitant]
     Indication: PULMONARY ARTERIAL HYPERTENSION
     Dosage: 5 ?G, UNK
     Route: 055
     Dates: start: 20120405
  15. AMBRISENTAN [Suspect]
     Indication: PULMONARY ARTERIAL HYPERTENSION
     Dosage: 5 MG, QD
     Route: 048
     Dates: start: 20100211
  16. POTASSIUM CHLORIDE DENOLIN [Concomitant]
     Indication: PROPHYLAXIS
     Dosage: 600 MG, QD
     Route: 048
     Dates: end: 20120406
  17. FUROSEMIDE                         /00032602/ [Concomitant]
     Indication: PULMONARY ARTERIAL HYPERTENSION
     Dosage: 1 DF, QD
     Route: 048
  18. METOCLOPRAMIDE [Concomitant]
     Indication: PROPHYLAXIS OF NAUSEA AND VOMITING
     Dosage: 10 MG, UNK
     Dates: end: 20120406
  19. EPOPROSTENOL SODIUM [Concomitant]
     Indication: PULMONARY ARTERIAL HYPERTENSION
     Dosage: 1 DF, QD
     Route: 042
     Dates: start: 20111201, end: 20120412
  20. OXACILLIN SODIUM [Concomitant]
     Indication: STAPHYLOCOCCAL BACTERAEMIA
  21. CLINDAMYCIN HCL [Concomitant]
     Indication: STAPHYLOCOCCAL BACTERAEMIA
  22. OFLOXACIN [Concomitant]
     Indication: PRODUCT USED FOR UNKNOWN INDICATION

REACTIONS (1)
  - TOXIC SKIN ERUPTION [None]
